FAERS Safety Report 17928956 (Version 1)
Quarter: 2020Q2

REPORT INFORMATION
  Report Type: Spontaneous
  Country: DE (occurrence: DE)
  Receive Date: 20200623
  Receipt Date: 20200623
  Transmission Date: 20200714
  Serious: Yes (Hospitalization)
  Sender: FDA-Public Use
  Company Number: DE-TEVA-2020-DE-1789148

PATIENT
  Age: 77 Year
  Sex: Female

DRUGS (13)
  1. LEVOTHYROXIN-NATRIUM [Concomitant]
     Active Substance: LEVOTHYROXINE SODIUM
     Dosage: 25 MICROGRAM DAILY; 1-0-0-0
     Route: 048
  2. AMIODARON [Concomitant]
     Active Substance: AMIODARONE
     Dosage: 200 MILLIGRAM DAILY; 1-0-0-0
     Route: 048
  3. BISOPROLOL [Suspect]
     Active Substance: BISOPROLOL
     Dosage: 5 MILLIGRAM DAILY; 1-0-1-0
     Route: 048
  4. ACETYLSALICYLSAURE [Concomitant]
     Active Substance: ASPIRIN
     Dosage: 100 MILLIGRAM DAILY; 0-1-0-0
     Route: 048
  5. ATORVASTATIN [Concomitant]
     Active Substance: ATORVASTATIN
     Dosage: 40 MILLIGRAM DAILY;  0-0-1-0
     Route: 048
  6. SPIRONOLACTON [Concomitant]
     Active Substance: SPIRONOLACTONE
     Dosage: 25 MILLIGRAM DAILY;  1-0-0-0
     Route: 048
  7. PANTOPRAZOL [Concomitant]
     Active Substance: PANTOPRAZOLE SODIUM
     Dosage: 40 MILLIGRAM DAILY; 1-0-0-0
     Route: 048
  8. DEXAMETHASON [Suspect]
     Active Substance: DEXAMETHASONE
     Dosage: 20 MG
     Route: 048
     Dates: end: 20200422
  9. BORTEZOMIB. [Suspect]
     Active Substance: BORTEZOMIB
     Dosage: 1.3 MG/M?
     Route: 058
     Dates: end: 20200420
  10. CALCIUMCARBONAT [Concomitant]
     Dosage: 1 DOSAGE FORMS DAILY; NK MG, 1-0-0-0
     Route: 048
  11. ACIC 200MG [Concomitant]
     Dosage: 200 MILLIGRAM DAILY; 1-0-0-0
     Route: 048
  12. VIGANTOLETTEN 1000I.E. [Concomitant]
     Active Substance: CHOLECALCIFEROL
     Dosage: 1 DOSAGE FORMS DAILY; 1000 IE, 1-0-0-0
     Route: 048
  13. COTRIM FORTE 800MG/160MG [Concomitant]
     Dosage: 800 | 160 MG, MONDAY WEDNESDAY FRIDAY
     Route: 048

REACTIONS (6)
  - Pyrexia [Unknown]
  - Oedema peripheral [Unknown]
  - Hypotension [Unknown]
  - Electrolyte imbalance [Unknown]
  - Fatigue [Unknown]
  - General physical health deterioration [Unknown]
